FAERS Safety Report 14329461 (Version 1)
Quarter: 2017Q4

REPORT INFORMATION
  Report Type: Spontaneous
  Country: US (occurrence: US)
  Receive Date: 20171227
  Receipt Date: 20171227
  Transmission Date: 20180321
  Serious: Yes (Other)
  Sender: FDA-Public Use
  Company Number: US-MALLINCKRODT-T201705246

PATIENT
  Sex: Female
  Weight: 54 kg

DRUGS (1)
  1. FENTANYL TRANSDERMAL SYSTEM [Suspect]
     Active Substance: FENTANYL
     Indication: PAIN
     Dosage: 100 MCG/HR EVERY 72 HOURS
     Route: 062

REACTIONS (5)
  - Pituitary tumour [Unknown]
  - Product adhesion issue [Unknown]
  - Disease recurrence [Unknown]
  - Myocardial infarction [Unknown]
  - Drug effect incomplete [Unknown]
